FAERS Safety Report 8304156 (Version 3)
Quarter: 2012Q4

REPORT INFORMATION
  Report Type: Report from Study
  Country: FR (occurrence: FR)
  Receive Date: 20111221
  Receipt Date: 20121221
  Transmission Date: 20130627
  Serious: Yes (Hospitalization, Other)
  Sender: FDA-Public Use
  Company Number: PHHY2011FR109853

PATIENT
  Age: 84 Year
  Sex: Female

DRUGS (1)
  1. ICL670A [Suspect]
     Indication: HAEMOCHROMATOSIS
     Dosage: 750 mg, daily
     Dates: start: 20070807, end: 20110822

REACTIONS (3)
  - Anaemia [Recovered/Resolved]
  - Atrial tachycardia [Recovered/Resolved]
  - Phlebitis [Recovered/Resolved]
